FAERS Safety Report 6849307-9 (Version None)
Quarter: 2010Q3

REPORT INFORMATION
  Report Type: 
  Country: None (occurrence: None)
  Receive Date: 20100716
  Receipt Date: 20070927
  Transmission Date: 20110219
  Serious: No
  Sender: FDA-Public Use
  Company Number: US-PFIZER INC-2007082591

PATIENT
  Sex: Female
  Weight: 75 kg

DRUGS (3)
  1. CHANTIX [Suspect]
     Indication: SMOKING CESSATION THERAPY
     Dates: start: 20070925
  2. XOPENEX [Concomitant]
     Indication: ASTHMA
  3. DYAZIDE [Concomitant]
     Indication: HYPERTENSION

REACTIONS (1)
  - HOT FLUSH [None]
